FAERS Safety Report 10067571 (Version 18)
Quarter: 2015Q3

REPORT INFORMATION
  Report Type: Report from Study
  Country: CA (occurrence: CA)
  Receive Date: 20140409
  Receipt Date: 20150915
  Transmission Date: 20151125
  Serious: Yes (Other)
  Sender: FDA-Public Use
  Company Number: CA-ROCHE-1359039

PATIENT
  Age: 58 Year
  Sex: Female

DRUGS (12)
  1. ACTEMRA [Suspect]
     Active Substance: TOCILIZUMAB
     Indication: RHEUMATOID ARTHRITIS
     Route: 042
     Dates: start: 20120820
  2. PLAQUENIL [Concomitant]
     Active Substance: HYDROXYCHLOROQUINE SULFATE
  3. TRAZODONE [Concomitant]
     Active Substance: TRAZODONE HYDROCHLORIDE
  4. METFORMIN [Concomitant]
     Active Substance: METFORMIN HYDROCHLORIDE
  5. LATEX [Concomitant]
     Active Substance: NATURAL LATEX RUBBER
  6. ACTEMRA [Suspect]
     Active Substance: TOCILIZUMAB
     Route: 042
     Dates: start: 20141201
  7. METHOTREXATE [Concomitant]
     Active Substance: METHOTREXATE
  8. SPIRONOLACTONE. [Concomitant]
     Active Substance: SPIRONOLACTONE
  9. MORPHINE [Concomitant]
     Active Substance: MORPHINE
  10. ACTEMRA [Suspect]
     Active Substance: TOCILIZUMAB
     Route: 042
     Dates: start: 20130806
  11. ACTEMRA [Suspect]
     Active Substance: TOCILIZUMAB
     Route: 042
     Dates: start: 20140210
  12. CODEINE [Concomitant]
     Active Substance: CODEINE

REACTIONS (9)
  - Serum ferritin decreased [Not Recovered/Not Resolved]
  - Musculoskeletal stiffness [Unknown]
  - Pneumonia [Recovering/Resolving]
  - Coeliac disease [Unknown]
  - Oropharyngeal pain [Unknown]
  - Nasopharyngitis [Unknown]
  - Asthma [Recovering/Resolving]
  - Oral candidiasis [Not Recovered/Not Resolved]
  - Corneal abrasion [Recovering/Resolving]

NARRATIVE: CASE EVENT DATE: 2013
